FAERS Safety Report 4920359-6 (Version None)
Quarter: 2006Q1

REPORT INFORMATION
  Report Type: 
  Country: None (occurrence: None)
  Receive Date: 20060223
  Receipt Date: 20050926
  Transmission Date: 20060701
  Serious: Yes (Hospitalization, Disabling)
  Sender: FDA-Public Use
  Company Number: US-MERCK-0509USA03850

PATIENT
  Age: 39 Year
  Sex: Female
  Weight: 147 kg

DRUGS (1)
  1. VIOXX [Suspect]
     Route: 048

REACTIONS (26)
  - ABDOMINAL ABSCESS [None]
  - ABDOMINAL WALL INFECTION [None]
  - ADVERSE EVENT [None]
  - ANXIETY [None]
  - BREAST CANCER [None]
  - BREAST MASS [None]
  - CONSTIPATION [None]
  - CONTUSION [None]
  - CYSTOCELE [None]
  - DEEP VEIN THROMBOSIS [None]
  - DEHYDRATION [None]
  - EMOTIONAL DISTRESS [None]
  - FISTULA [None]
  - GASTRIC BYPASS [None]
  - GASTROINTESTINAL DISORDER [None]
  - GASTROINTESTINAL HAEMORRHAGE [None]
  - HAEMATURIA [None]
  - HYPERTENSIVE HEART DISEASE [None]
  - MENOMETRORRHAGIA [None]
  - NAUSEA [None]
  - PSEUDOMONAS INFECTION [None]
  - PURULENCE [None]
  - RECTOCELE [None]
  - SERRATIA INFECTION [None]
  - VOMITING [None]
  - WOUND DRAINAGE [None]
